FAERS Safety Report 6762300-X (Version None)
Quarter: 2010Q2

REPORT INFORMATION
  Report Type: 
  Country: None (occurrence: None)
  Receive Date: 20100609
  Receipt Date: 20100602
  Transmission Date: 20101027
  Serious: Yes (Hospitalization)
  Sender: FDA-Public Use
  Company Number: US-SANOFI-AVENTIS-2009SA008501

PATIENT
  Age: 29 Year
  Sex: Male

DRUGS (5)
  1. DDAVP [Suspect]
     Route: 045
     Dates: start: 20061101
  2. CLARITIN [Concomitant]
  3. DIURETICS [Concomitant]
  4. ZOMIG [Concomitant]
  5. DITROPAN [Concomitant]

REACTIONS (17)
  - AMNESIA [None]
  - CHILLS [None]
  - CONVULSION [None]
  - DISORIENTATION [None]
  - DISTURBANCE IN ATTENTION [None]
  - EYE INFECTION [None]
  - FLUSHING [None]
  - GASTRITIS [None]
  - HYPOKALAEMIA [None]
  - HYPOMAGNESAEMIA [None]
  - HYPONATRAEMIA [None]
  - LOSS OF CONSCIOUSNESS [None]
  - MIGRAINE [None]
  - NAUSEA [None]
  - SENSORY LOSS [None]
  - THIRST [None]
  - TREMOR [None]
